FAERS Safety Report 24055786 (Version 1)
Quarter: 2024Q3

REPORT INFORMATION
  Report Type: Spontaneous
  Country: CA (occurrence: None)
  Receive Date: 20240705
  Receipt Date: 20240705
  Transmission Date: 20241016
  Serious: Yes (Hospitalization)
  Sender: ASTRAZENECA
  Company Number: 2024A149814

PATIENT
  Age: 64 Year
  Sex: Female
  Weight: 76 kg

DRUGS (14)
  1. DAPAGLIFLOZIN [Suspect]
     Active Substance: DAPAGLIFLOZIN
     Indication: Diabetes mellitus
     Dosage: EVERY DAY
     Route: 048
  2. ANUGESIC-HC [Concomitant]
     Route: 054
  3. ASPIRIN [Concomitant]
     Active Substance: ASPIRIN
  4. ATROVENT HFA [Concomitant]
     Active Substance: IPRATROPIUM BROMIDE
  5. DILAUDID [Concomitant]
     Active Substance: HYDROMORPHONE HYDROCHLORIDE
  6. LASIX [Concomitant]
     Active Substance: FUROSEMIDE
  7. LIPITOR [Concomitant]
     Active Substance: ATORVASTATIN CALCIUM
  8. NOVORAPID [Concomitant]
     Active Substance: INSULIN ASPART
  9. RUB A535 [Concomitant]
     Dosage: REGULAR STRENGTH HEATING CREAM
  10. SODIUM BICARBONATE [Concomitant]
     Active Substance: SODIUM BICARBONATE
  11. PANTOPRAZOLE MAGNESIUM [Concomitant]
     Active Substance: PANTOPRAZOLE MAGNESIUM
  12. TRESIBA [Concomitant]
     Active Substance: INSULIN DEGLUDEC
     Dosage: (PREFILLED PEN)
  13. TRURAPI CARTRIDGE [Concomitant]
  14. VENTOLIN HFA [Concomitant]
     Active Substance: ALBUTEROL SULFATE

REACTIONS (2)
  - Gangrene [Recovering/Resolving]
  - Hypoglycaemia [Recovering/Resolving]
